FAERS Safety Report 16202230 (Version 2)
Quarter: 2019Q2

REPORT INFORMATION
  Report Type: Report from Study
  Country: US (occurrence: US)
  Receive Date: 20190416
  Receipt Date: 20190503
  Transmission Date: 20190711
  Serious: Yes (Hospitalization)
  Sender: FDA-Public Use
  Company Number: US-GILEAD-2019-0400294

PATIENT
  Age: 47 Year
  Sex: Female

DRUGS (3)
  1. TADALAFIL. [Concomitant]
     Active Substance: TADALAFIL
  2. REMODULIN [Concomitant]
     Active Substance: TREPROSTINIL
  3. AMBRISENTAN [Suspect]
     Active Substance: AMBRISENTAN
     Indication: PULMONARY ARTERIAL HYPERTENSION
     Dosage: 10 MG, QD
     Route: 065
     Dates: start: 20170322

REACTIONS (10)
  - Cyanosis [Unknown]
  - Feeling abnormal [Unknown]
  - Intra-abdominal fluid collection [Not Recovered/Not Resolved]
  - Lung disorder [Unknown]
  - Peripheral swelling [Not Recovered/Not Resolved]
  - Catheter site haemorrhage [Recovered/Resolved]
  - Device dislocation [Unknown]
  - Proctitis [Unknown]
  - Diarrhoea [Not Recovered/Not Resolved]
  - Bladder catheterisation [Unknown]
